FAERS Safety Report 5064521-3 (Version None)
Quarter: 2006Q3

REPORT INFORMATION
  Report Type: 
  Country: None (occurrence: None)
  Receive Date: 20060728
  Receipt Date: 20060522
  Transmission Date: 20061208
  Serious: Yes (Other)
  Sender: FDA-Public Use
  Company Number: 2006UW09987

PATIENT
  Sex: Female

DRUGS (2)
  1. SEROQUEL [Suspect]
     Route: 048
     Dates: start: 20030101, end: 20030101
  2. SERZONE [Suspect]

REACTIONS (2)
  - DRUG DISPENSING ERROR [None]
  - SEROTONIN SYNDROME [None]
